FAERS Safety Report 8779310 (Version 1)
Quarter: 2012Q4

REPORT INFORMATION
  Report Type: 
  Country: US (occurrence: US)
  Receive Date: 20120912
  Receipt Date: 20120912
  Transmission Date: 20130627
  Serious: No
  Sender: FDA-Public Use
  Company Number: US-BAYER-2012-076806

PATIENT
  Sex: Male

DRUGS (1)
  1. BETAPACE [Suspect]
     Dosage: UNK
     Dates: start: 20120713

REACTIONS (2)
  - Malaise [None]
  - Lethargy [None]
